FAERS Safety Report 11341053 (Version 1)
Quarter: 2015Q3

REPORT INFORMATION
  Report Type: Spontaneous
  Country: US (occurrence: None)
  Receive Date: 20150803
  Receipt Date: 20150803
  Transmission Date: 20151125
  Serious: Yes (Life-Threatening)
  Sender: FDA-Public Use
  Company Number: None

PATIENT
  Age: 67 Year
  Sex: Female
  Weight: 52.16 kg

DRUGS (3)
  1. TRAZODONE [Suspect]
     Active Substance: TRAZODONE HYDROCHLORIDE
     Indication: SLEEP DISORDER
     Dosage: 1/2 PILL, NIGHTLY?
     Route: 048
  2. VITAMIN [Concomitant]
     Active Substance: VITAMINS
  3. CALCIUM [Concomitant]
     Active Substance: CALCIUM

REACTIONS (7)
  - Nasal dryness [None]
  - Nightmare [None]
  - Dyspnoea [None]
  - Dry mouth [None]
  - Apparent death [None]
  - Feeling abnormal [None]
  - Feeling cold [None]

NARRATIVE: CASE EVENT DATE: 20150730
